FAERS Safety Report 6934741-9 (Version None)
Quarter: 2010Q3

REPORT INFORMATION
  Report Type: 
  Country: None (occurrence: None)
  Receive Date: 20100820
  Receipt Date: 20100812
  Transmission Date: 20110219
  Serious: Yes (Hospitalization)
  Sender: FDA-Public Use
  Company Number: AR-AMGEN-QUU427796

PATIENT
  Sex: Female
  Weight: 63 kg

DRUGS (5)
  1. ENBREL [Suspect]
     Indication: RHEUMATOID ARTHRITIS
     Route: 058
     Dates: start: 20031115
  2. ATENOLOL [Concomitant]
     Indication: HYPERTENSION
  3. LERCANIDIPINE [Concomitant]
     Indication: HYPERTENSION
  4. PROPAFENONE HCL [Concomitant]
     Indication: ARRHYTHMIA
  5. DIONDEL [Concomitant]
     Indication: ARRHYTHMIA

REACTIONS (3)
  - ATRIAL FIBRILLATION [None]
  - BLOOD PRESSURE INCREASED [None]
  - CONDITION AGGRAVATED [None]
